FAERS Safety Report 6720647-7 (Version None)
Quarter: 2010Q2

REPORT INFORMATION
  Report Type: 
  Country: None (occurrence: None)
  Receive Date: 20100510
  Receipt Date: 20100425
  Transmission Date: 20101027
  Serious: Yes (Death)
  Sender: FDA-Public Use
  Company Number: KV201000130

PATIENT
  Age: 70 Year
  Sex: Female
  Weight: 84.1 kg

DRUGS (19)
  1. MORPHINE SULFATE [Suspect]
     Indication: PAIN
     Dosage: 15MG, 1-2 TABLETS Q4H PRN, ORAL
     Route: 048
     Dates: start: 20080118, end: 20080101
  2. ALTACE [Concomitant]
  3. NEXIUM [Concomitant]
  4. NITROSTAT [Concomitant]
  5. HUMALIN (INSULIN) [Concomitant]
  6. COREG [Concomitant]
  7. PRAVACHOL [Concomitant]
  8. PLAVIX [Concomitant]
  9. LEVOXYL [Concomitant]
  10. TYLENOL (PARACETAMOL) [Concomitant]
  11. NARVAC INJECTABLE [Concomitant]
  12. ASPIRIN [Concomitant]
  13. LASIX [Concomitant]
  14. SPIRONOLACTONE [Concomitant]
  15. BETAPACE [Concomitant]
  16. LORAZEPAM [Concomitant]
  17. FLUOROURACIL [Concomitant]
  18. LEUCOVORIN CALCIUM [Concomitant]
  19. ALOXI [Concomitant]

REACTIONS (15)
  - ASTHENIA [None]
  - DECREASED APPETITE [None]
  - DIARRHOEA [None]
  - FATIGUE [None]
  - HEADACHE [None]
  - MUSCULAR WEAKNESS [None]
  - NAUSEA [None]
  - OEDEMA PERIPHERAL [None]
  - OESOPHAGITIS [None]
  - ORAL CANDIDIASIS [None]
  - ORAL PAIN [None]
  - RESPIRATORY RATE DECREASED [None]
  - SOMNOLENCE [None]
  - TOOTHACHE [None]
  - VOMITING [None]
